FAERS Safety Report 18318269 (Version 2)
Quarter: 2020Q4

REPORT INFORMATION
  Report Type: Spontaneous
  Country: US (occurrence: US)
  Receive Date: 20200928
  Receipt Date: 20201112
  Transmission Date: 20210113
  Serious: Yes (Other)
  Sender: FDA-Public Use
  Company Number: US-009507513-2009USA005502

PATIENT
  Age: 79 Year
  Sex: Male
  Weight: 90.3 kg

DRUGS (7)
  1. NORVASC [Concomitant]
     Active Substance: AMLODIPINE BESYLATE
     Dosage: UNK
  2. NIVOLUMAB [Concomitant]
     Active Substance: NIVOLUMAB
     Indication: METASTATIC MALIGNANT MELANOMA
     Dosage: UNK
     Route: 042
     Dates: start: 20180809, end: 20190211
  3. METFORMIN [Concomitant]
     Active Substance: METFORMIN HYDROCHLORIDE
     Dosage: UNK
  4. NEURONTIN [Concomitant]
     Active Substance: GABAPENTIN
     Dosage: UNK
  5. KEYTRUDA [Suspect]
     Active Substance: PEMBROLIZUMAB
     Indication: METASTATIC MALIGNANT MELANOMA
     Dosage: 200MG, EVERY 3 WEEKS
     Route: 042
     Dates: start: 20190920
  6. INSULIN [Concomitant]
     Active Substance: INSULIN NOS
     Dosage: UNK
  7. ELIQUIS [Concomitant]
     Active Substance: APIXABAN
     Dosage: UNK

REACTIONS (7)
  - Glaucoma [Unknown]
  - Neuropathy peripheral [Unknown]
  - Vitamin D deficiency [Unknown]
  - Fatigue [Recovering/Resolving]
  - Myalgia [Recovering/Resolving]
  - Synovial disorder [Unknown]
  - Immune-mediated arthritis [Recovered/Resolved with Sequelae]

NARRATIVE: CASE EVENT DATE: 201909
